FAERS Safety Report 24279202 (Version 1)
Quarter: 2024Q3

REPORT INFORMATION
  Report Type: Spontaneous
  Country: US (occurrence: None)
  Receive Date: 20240901
  Receipt Date: 20240901
  Transmission Date: 20241017
  Serious: Yes (Other)
  Sender: Public
  Company Number: None

PATIENT
  Sex: 0

DRUGS (1)
  1. ENOVID [Suspect]
     Active Substance: MESTRANOL\NORETHYNODREL

REACTIONS (2)
  - Product tampering [None]
  - Product container seal issue [None]

NARRATIVE: CASE EVENT DATE: 20240801
